FAERS Safety Report 13671457 (Version 1)
Quarter: 2017Q2

REPORT INFORMATION
  Report Type: Spontaneous
  Country: US (occurrence: US)
  Receive Date: 20170620
  Receipt Date: 20170620
  Transmission Date: 20170830
  Serious: No
  Sender: FDA-Public Use
  Company Number: US-ROCHE-1523800

PATIENT
  Sex: Female

DRUGS (3)
  1. WELLBUTRIN SR [Concomitant]
     Active Substance: BUPROPION HYDROCHLORIDE
  2. ATIVAN [Concomitant]
     Active Substance: LORAZEPAM
  3. XELODA [Suspect]
     Active Substance: CAPECITABINE
     Indication: UTERINE CANCER
     Route: 048
     Dates: start: 20140205, end: 20150110

REACTIONS (2)
  - Erythema [Not Recovered/Not Resolved]
  - Drug ineffective [Unknown]
